FAERS Safety Report 8334793-8 (Version None)
Quarter: 2012Q2

REPORT INFORMATION
  Report Type: 
  Country: None (occurrence: None)
  Receive Date: 20120503
  Receipt Date: 20120430
  Transmission Date: 20120825
  Serious: Yes (Hospitalization)
  Sender: FDA-Public Use
  Company Number: PHEH2001US09726

PATIENT
  Sex: Male
  Weight: 46 kg

DRUGS (3)
  1. GILENYA [Suspect]
     Indication: RENAL TRANSPLANT
     Dosage: 5 MG (LOADING DOSE)
     Route: 048
     Dates: start: 20011124, end: 20011124
  2. CERTICAN [Suspect]
     Indication: RENAL TRANSPLANT
     Dosage: 4 MG
     Route: 048
     Dates: start: 20011124
  3. ATENOLOL [Concomitant]
     Indication: HYPERTENSION
     Dates: end: 20011123

REACTIONS (4)
  - ELECTROCARDIOGRAM ABNORMAL [None]
  - HYPOTENSION [None]
  - ATRIAL FIBRILLATION [None]
  - BRADYCARDIA [None]
